FAERS Safety Report 6261824-1 (Version None)
Quarter: 2009Q3

REPORT INFORMATION
  Report Type: 
  Country: None (occurrence: None)
  Receive Date: 20090709
  Receipt Date: 20090625
  Transmission Date: 20100115
  Serious: Yes (Hospitalization)
  Sender: FDA-Public Use
  Company Number: BE-ROCHE-640411

PATIENT
  Sex: Female

DRUGS (12)
  1. CELLCEPT [Suspect]
     Indication: SYSTEMIC LUPUS ERYTHEMATOSUS
     Route: 048
     Dates: end: 20090201
  2. CELLCEPT [Suspect]
     Route: 048
     Dates: start: 20090401
  3. ASPIRIN [Concomitant]
     Dosage: DRUG: ACETYLSALICYC ACID
     Route: 048
  4. SIMVASTATIN [Concomitant]
     Route: 048
  5. METHYLPREDNISOLONE [Concomitant]
     Indication: SYSTEMIC LUPUS ERYTHEMATOSUS
     Route: 048
  6. PLAQUENIL [Concomitant]
  7. CALCIUM CARBONATE [Concomitant]
  8. D-CURE [Concomitant]
     Dosage: DOSE FORM: AMPULE
  9. ZESTRIL [Concomitant]
  10. LASIX [Concomitant]
  11. ISOPTIN [Concomitant]
  12. PANTOZOL [Concomitant]

REACTIONS (2)
  - CORONARY ARTERY OCCLUSION [None]
  - MICROCYTIC ANAEMIA [None]
